FAERS Safety Report 5203602-8 (Version None)
Quarter: 2007Q1

REPORT INFORMATION
  Report Type: 
  Country: None (occurrence: None)
  Receive Date: 20070110
  Receipt Date: 20070104
  Transmission Date: 20070707
  Serious: Yes (Death)
  Sender: FDA-Public Use
  Company Number: US-JNJFOC-20061203365

PATIENT
  Age: 84 Year
  Sex: Female

DRUGS (3)
  1. DOXIL [Suspect]
     Indication: COLON CANCER
     Route: 042
  2. DOXIL [Suspect]
     Indication: UTERINE CANCER
     Route: 042
  3. GEMZAR [Concomitant]
     Indication: NEOPLASM MALIGNANT

REACTIONS (1)
  - DISEASE PROGRESSION [None]
